FAERS Safety Report 16842067 (Version 1)
Quarter: 2019Q3

REPORT INFORMATION
  Report Type: Spontaneous
  Country: US (occurrence: US)
  Receive Date: 20190923
  Receipt Date: 20190923
  Transmission Date: 20191005
  Serious: Yes (Hospitalization)
  Sender: FDA-Public Use
  Company Number: US-ASTRAZENECA-2019SF33736

PATIENT
  Sex: Female
  Weight: 89.4 kg

DRUGS (2)
  1. SYMBICORT [Suspect]
     Active Substance: BUDESONIDE\FORMOTEROL FUMARATE DIHYDRATE
     Indication: PULMONARY FIBROSIS
     Dosage: 160/4.5 UG TWO PUFF TWICE DAILY
     Route: 055
  2. SYMBICORT [Suspect]
     Active Substance: BUDESONIDE\FORMOTEROL FUMARATE DIHYDRATE
     Indication: ASTHMA
     Dosage: 160/4.5 UG TWO PUFF TWICE DAILY
     Route: 055

REACTIONS (4)
  - Pneumonia [Recovered/Resolved]
  - Wrong technique in device usage process [Unknown]
  - Intentional device misuse [Not Recovered/Not Resolved]
  - Candida infection [Unknown]
